FAERS Safety Report 7963666-5 (Version None)
Quarter: 2011Q4

REPORT INFORMATION
  Report Type: 
  Country: None (occurrence: None)
  Receive Date: 20111208
  Receipt Date: 20111024
  Transmission Date: 20120403
  Serious: No
  Sender: FDA-Public Use
  Company Number: US-BAYER-2011-104414

PATIENT
  Age: 77 Year
  Sex: Female
  Weight: 86 kg

DRUGS (3)
  1. ALEVE (CAPLET) [Suspect]
     Indication: ARTHRITIS
     Dosage: 2 DF, BID
     Dates: start: 20111001, end: 20111023
  2. ALEVE (CAPLET) [Suspect]
     Dosage: 2 DF, BID
     Dates: start: 20111001
  3. ASPIRIN [Concomitant]
     Indication: ISCHAEMIC HEART DISEASE PROPHYLAXIS

REACTIONS (2)
  - ARTHRALGIA [None]
  - NO ADVERSE EVENT [None]
